FAERS Safety Report 8565393 (Version 2)
Quarter: 2018Q2

REPORT INFORMATION
  Report Type: Report from Study
  Country: SE (occurrence: SE)
  Receive Date: 20120516
  Receipt Date: 20180606
  Transmission Date: 20180711
  Serious: Yes (Hospitalization)
  Sender: FDA-Public Use
  Company Number: SE-AMGEN-SWECT2012023407

PATIENT
  Age: 42 Year
  Sex: Female

DRUGS (3)
  1. HUMIRA [Suspect]
     Active Substance: ADALIMUMAB
     Indication: SPONDYLITIS
     Dosage: 40 MG, AS NECESSARY
     Route: 058
     Dates: start: 20110926, end: 20120110
  2. ETANERCEPT [Suspect]
     Active Substance: ETANERCEPT
     Indication: SPONDYLITIS
     Dosage: 50 MG, QWK
     Route: 058
     Dates: start: 20110325, end: 20110912
  3. METHOTREXATE. [Concomitant]
     Active Substance: METHOTREXATE
     Dosage: UNK
     Dates: start: 20110325, end: 20120110

REACTIONS (1)
  - Sarcoidosis [Recovering/Resolving]

NARRATIVE: CASE EVENT DATE: 20120113
